FAERS Safety Report 18137317 (Version 1)
Quarter: 2020Q3

REPORT INFORMATION
  Report Type: Spontaneous
  Country: US (occurrence: US)
  Receive Date: 20200811
  Receipt Date: 20200811
  Transmission Date: 20201103
  Serious: Yes (Other)
  Sender: FDA-Public Use
  Company Number: US-MALLINCKRODT-T202004002

PATIENT
  Sex: Male

DRUGS (1)
  1. H.P. ACTHAR [Suspect]
     Active Substance: CORTICOTROPIN
     Indication: PULMONARY SARCOIDOSIS
     Dosage: 40 UNITS TWICE A WEEK
     Route: 058

REACTIONS (1)
  - COVID-19 [Unknown]
